FAERS Safety Report 11047508 (Version 1)
Quarter: 2015Q2

REPORT INFORMATION
  Report Type: Spontaneous
  Country: GB (occurrence: GB)
  Receive Date: 20150420
  Receipt Date: 20150420
  Transmission Date: 20150821
  Serious: Yes (Other)
  Sender: FDA-Public Use
  Company Number: GB-TEVA-555305ACC

PATIENT
  Age: 83 Year
  Sex: Male
  Weight: 85.72 kg

DRUGS (8)
  1. FUROSEMIDE. [Suspect]
     Active Substance: FUROSEMIDE
     Indication: ANGINA PECTORIS
     Route: 048
     Dates: start: 2013, end: 201501
  2. BISOPROLOL [Concomitant]
     Active Substance: BISOPROLOL
  3. SIMVASTATIN. [Concomitant]
     Active Substance: SIMVASTATIN
  4. FUROSEMIDE. [Suspect]
     Active Substance: FUROSEMIDE
     Indication: ANGINA PECTORIS
     Route: 048
     Dates: start: 201501
  5. AMIODARONE [Concomitant]
     Active Substance: AMIODARONE
  6. RAMIPRIL. [Concomitant]
     Active Substance: RAMIPRIL
  7. ASPIRIN. [Concomitant]
     Active Substance: ASPIRIN
  8. OMEPRAZOLE. [Concomitant]
     Active Substance: OMEPRAZOLE

REACTIONS (5)
  - Blister [Not Recovered/Not Resolved]
  - Pemphigoid [Not Recovered/Not Resolved]
  - Impaired healing [Unknown]
  - Blister rupture [Unknown]
  - Wound complication [Unknown]

NARRATIVE: CASE EVENT DATE: 201411
